FAERS Safety Report 18140172 (Version 3)
Quarter: 2020Q3

REPORT INFORMATION
  Report Type: Other
  Country: CN (occurrence: CN)
  Receive Date: 20200812
  Receipt Date: 20200827
  Transmission Date: 20201103
  Serious: Yes (Death, Hospitalization, Other)
  Sender: FDA-Public Use
  Company Number: CN-ABBVIE-20K-035-3522448-00

PATIENT
  Age: 86 Year
  Sex: Male

DRUGS (1)
  1. IBRUTINIB [Suspect]
     Active Substance: IBRUTINIB
     Indication: WALDENSTROM^S MACROGLOBULINAEMIA
     Route: 065

REACTIONS (5)
  - Atrial fibrillation [Unknown]
  - Bundle branch block right [Unknown]
  - Capillary leak syndrome [Fatal]
  - Ecchymosis [Unknown]
  - Pneumonia [Unknown]
